FAERS Safety Report 9202265 (Version 2)
Quarter: 2013Q2

REPORT INFORMATION
  Report Type: Spontaneous
  Country: US (occurrence: US)
  Receive Date: 20130401
  Receipt Date: 20130520
  Transmission Date: 20140414
  Serious: Yes (Life-Threatening, Hospitalization)
  Sender: FDA-Public Use
  Company Number: US-ASTRAZENECA-2013SE19296

PATIENT
  Age: 5432 Day
  Sex: Male

DRUGS (3)
  1. SEROQUEL [Suspect]
     Indication: DEPRESSION
     Route: 048
  2. SEROQUEL [Suspect]
     Indication: DEPRESSION
     Dosage: TOOK 60 PLUS TABLETS
     Route: 048
  3. UNKNOWN MEDICATIONS [Suspect]
     Route: 065

REACTIONS (2)
  - Overdose [Recovered/Resolved]
  - Depression suicidal [Recovered/Resolved]
